FAERS Safety Report 4421216-4 (Version None)
Quarter: 2004Q3

REPORT INFORMATION
  Report Type: 
  Country: None (occurrence: None)
  Receive Date: 20040809
  Receipt Date: 20040406
  Transmission Date: 20050211
  Serious: Yes (Life-Threatening, Hospitalization)
  Sender: FDA-Public Use
  Company Number: PHNU2004DE01458

PATIENT
  Age: 22 Year
  Sex: Male
  Weight: 80 kg

DRUGS (5)
  1. TRILEPTAL [Suspect]
     Indication: SIMPLE PARTIAL SEIZURES
     Dosage: 600 MG, BID
     Route: 048
     Dates: start: 20010201, end: 20040331
  2. NOVALGIN                                /SCH/ [Concomitant]
     Indication: BONE MARROW TOXICITY
     Dosage: UNK, PRN
     Route: 048
     Dates: end: 20040401
  3. RITALIN [Concomitant]
  4. PHENYTOIN [Concomitant]
     Indication: SIMPLE PARTIAL SEIZURES
     Route: 042
  5. DIAZEPAM [Concomitant]
     Indication: SIMPLE PARTIAL SEIZURES
     Dosage: UNK, PRN

REACTIONS (24)
  - ACUTE TONSILLITIS [None]
  - AGRANULOCYTOSIS [None]
  - APHTHOUS STOMATITIS [None]
  - BLOOD CHOLINESTERASE DECREASED [None]
  - C-REACTIVE PROTEIN INCREASED [None]
  - CANDIDA SEROLOGY POSITIVE [None]
  - ELECTROPHORESIS ABNORMAL [None]
  - EPSTEIN-BARR VIRUS ANTIBODY POSITIVE [None]
  - GINGIVAL ABSCESS [None]
  - HAEMATOCRIT DECREASED [None]
  - HAEMOGLOBIN DECREASED [None]
  - HEART RATE INCREASED [None]
  - HERPES SIMPLEX SEROLOGY POSITIVE [None]
  - HERPES ZOSTER [None]
  - HYPOALBUMINAEMIA [None]
  - LYMPHOCYTOSIS [None]
  - MUCOSAL INFLAMMATION [None]
  - PLEURAL EFFUSION [None]
  - PNEUMONIA [None]
  - PYREXIA [None]
  - RED BLOOD CELL COUNT DECREASED [None]
  - SIMPLE PARTIAL SEIZURES [None]
  - URTICARIA [None]
  - VIRUS SEROLOGY TEST POSITIVE [None]
